FAERS Safety Report 23241428 (Version 1)
Quarter: 2023Q4

REPORT INFORMATION
  Report Type: Spontaneous
  Country: US (occurrence: None)
  Receive Date: 20231129
  Receipt Date: 20231129
  Transmission Date: 20240110
  Serious: Yes (Hospitalization)
  Sender: FDA-Public Use
  Company Number: 2023A265305

PATIENT
  Sex: Female

DRUGS (1)
  1. FARXIGA [Suspect]
     Active Substance: DAPAGLIFLOZIN PROPANEDIOL
     Dosage: 10.0MG UNKNOWN
     Route: 048

REACTIONS (6)
  - Cystitis [Unknown]
  - Haemorrhage subcutaneous [Unknown]
  - Haemorrhage urinary tract [Unknown]
  - Glucose urine present [Unknown]
  - Blood glucose increased [Unknown]
  - Nephrolithiasis [Unknown]
